FAERS Safety Report 5825862-2 (Version None)
Quarter: 2008Q3

REPORT INFORMATION
  Report Type: 
  Country: None (occurrence: None)
  Receive Date: 20080729
  Receipt Date: 20080724
  Transmission Date: 20090109
  Serious: Yes (Life-Threatening, Hospitalization, Other)
  Sender: FDA-Public Use
  Company Number: GB-BRISTOL-MYERS SQUIBB COMPANY-13888359

PATIENT
  Age: 39 Year
  Sex: Male

DRUGS (3)
  1. EFAVIRENZ [Suspect]
     Indication: HIV INFECTION
     Route: 048
     Dates: start: 20060701, end: 20070601
  2. NATRASLEEP [Suspect]
  3. KIVEXA [Concomitant]
     Indication: HIV INFECTION
     Route: 048
     Dates: start: 20060701, end: 20070601

REACTIONS (5)
  - ACUTE HEPATIC FAILURE [None]
  - DRUG INTERACTION [None]
  - ENCEPHALOPATHY [None]
  - JAUNDICE [None]
  - LIVER TRANSPLANT [None]
